FAERS Safety Report 21380863 (Version 1)
Quarter: 2022Q3

REPORT INFORMATION
  Report Type: Spontaneous
  Country: US (occurrence: None)
  Receive Date: 20220927
  Receipt Date: 20220927
  Transmission Date: 20221026
  Serious: Yes (Hospitalization, Other)
  Sender: FDA-Public Use
  Company Number: US-Hikma Pharmaceuticals USA Inc.-US-H14001-22-02372

PATIENT
  Age: 3 Month
  Sex: Male
  Weight: 6.24 kg

DRUGS (31)
  1. FENTANYL [Suspect]
     Active Substance: FENTANYL
     Indication: Analgesic therapy
     Dosage: 186 UG; 30 MCG/KG
     Route: 042
  2. FENTANYL [Suspect]
     Active Substance: FENTANYL
     Indication: Neuromuscular blockade
     Dosage: 4 UG/KG; AT 10:15, 12 MCG GIVEN
     Route: 042
  3. FENTANYL [Suspect]
     Active Substance: FENTANYL
     Route: 065
  4. FENTANYL [Suspect]
     Active Substance: FENTANYL
     Dosage: 10 UG
     Route: 042
  5. FENTANYL [Suspect]
     Active Substance: FENTANYL
     Dosage: 5 UG
     Route: 065
  6. FENTANYL [Suspect]
     Active Substance: FENTANYL
     Dosage: BEGAN WEANING AT 13:03
     Route: 042
  7. FENTANYL [Suspect]
     Active Substance: FENTANYL
     Route: 042
  8. FENTANYL [Suspect]
     Active Substance: FENTANYL
     Dosage: 10 UG
     Route: 042
  9. FENTANYL [Suspect]
     Active Substance: FENTANYL
     Dosage: 10 UG
     Route: 042
  10. FENTANYL [Suspect]
     Active Substance: FENTANYL
     Dosage: 10 UG
     Route: 042
  11. FENTANYL [Suspect]
     Active Substance: FENTANYL
     Route: 065
  12. FENTANYL [Suspect]
     Active Substance: FENTANYL
     Dosage: 25 UG; (7.2 MG/KG)
     Route: 065
  13. FENTANYL [Suspect]
     Active Substance: FENTANYL
     Dosage: 5 UG/KG; AT 11:15, 10 MCG GIVEN
     Route: 042
  14. FENTANYL [Suspect]
     Active Substance: FENTANYL
     Dosage: 10 UG
     Route: 042
  15. ROPIVACAINE [Suspect]
     Active Substance: ROPIVACAINE
     Indication: Product used for unknown indication
     Dosage: UNKNOWN
     Route: 065
  16. ROPIVACAINE [Suspect]
     Active Substance: ROPIVACAINE
     Dosage: UNKNOWN
     Route: 058
  17. SEVOFLURANE [Suspect]
     Active Substance: SEVOFLURANE
     Indication: Induction of anaesthesia
     Dosage: 0.7 DURING PREPARATORY PHASE AT 10:15
  18. SEVOFLURANE [Suspect]
     Active Substance: SEVOFLURANE
     Dosage: 1.5 AT 13:15
  19. SEVOFLURANE [Suspect]
     Active Substance: SEVOFLURANE
     Dosage: 1.3 AT 10:51
  20. SEVOFLURANE [Suspect]
     Active Substance: SEVOFLURANE
     Dosage: 1.5 AT 10:54
  21. SEVOFLURANE [Suspect]
     Active Substance: SEVOFLURANE
     Dosage: 1.7 AT 10:54
  22. SEVOFLURANE [Suspect]
     Active Substance: SEVOFLURANE
     Dosage: ABLE TO WEAN TO 1 AT 11:49
  23. SEVOFLURANE [Suspect]
     Active Substance: SEVOFLURANE
     Dosage: 2 AT 11:36
  24. DEXMEDETOMIDINE [Suspect]
     Active Substance: DEXMEDETOMIDINE
     Indication: Neuromuscular blockade
     Route: 042
  25. DEXMEDETOMIDINE [Suspect]
     Active Substance: DEXMEDETOMIDINE
     Dosage: 1 UG
     Route: 042
  26. DEXMEDETOMIDINE [Suspect]
     Active Substance: DEXMEDETOMIDINE
     Dosage: 17.7 UG; 2.8 MCG/KG
     Route: 042
  27. DEXMEDETOMIDINE [Suspect]
     Active Substance: DEXMEDETOMIDINE
     Dosage: 0.4 UG/KG; AT 10:15, 1 MCG GIVEN
     Route: 042
  28. DEXMEDETOMIDINE [Suspect]
     Active Substance: DEXMEDETOMIDINE
     Dosage: BEGAN WEANING AT 13:03
     Route: 042
  29. DEXMEDETOMIDINE [Suspect]
     Active Substance: DEXMEDETOMIDINE
     Route: 042
  30. DEXMEDETOMIDINE [Suspect]
     Active Substance: DEXMEDETOMIDINE
     Dosage: 1 UG
     Route: 042
  31. SUGAMMADEX [Suspect]
     Active Substance: SUGAMMADEX
     Indication: Neuromuscular blockade reversal
     Dosage: UNKNOWN
     Route: 065

REACTIONS (4)
  - Hyperaesthesia [Recovered/Resolved]
  - Paradoxical drug reaction [Recovered/Resolved]
  - Crying [Recovered/Resolved]
  - Agitation [Recovered/Resolved]
